FAERS Safety Report 5132091-7 (Version None)
Quarter: 2006Q4

REPORT INFORMATION
  Report Type: 
  Country: None (occurrence: None)
  Receive Date: 20061017
  Receipt Date: 20061011
  Transmission Date: 20070319
  Serious: Yes (Hospitalization)
  Sender: FDA-Public Use
  Company Number: 2006SP000970

PATIENT
  Age: 48 Year
  Sex: Female
  Weight: 49.8957 kg

DRUGS (5)
  1. PEG-INTRON [Suspect]
     Indication: HEPATITIS C
     Dosage: 80 MCG, SC
     Route: 058
  2. RIBAVIRIN [Suspect]
     Indication: HEPATITIS C
     Dosage: 800 MG PO
     Route: 048
  3. PHENERGAN [Concomitant]
  4. DARVOCET [Concomitant]
  5. VICOPROFEN [Concomitant]

REACTIONS (13)
  - AMMONIA INCREASED [None]
  - BACTERIA URINE IDENTIFIED [None]
  - BLOOD MAGNESIUM DECREASED [None]
  - BLOOD POTASSIUM DECREASED [None]
  - CONFUSIONAL STATE [None]
  - ESCHERICHIA INFECTION [None]
  - FATIGUE [None]
  - HEADACHE [None]
  - LOSS OF CONSCIOUSNESS [None]
  - PAIN [None]
  - PYREXIA [None]
  - RED BLOOD CELLS URINE POSITIVE [None]
  - ROAD TRAFFIC ACCIDENT [None]
